FAERS Safety Report 9409323 (Version 3)
Quarter: 2013Q4

REPORT INFORMATION
  Report Type: Spontaneous
  Country: US (occurrence: US)
  Receive Date: 20130719
  Receipt Date: 20131231
  Transmission Date: 20140711
  Serious: Yes (Hospitalization, Other)
  Sender: FDA-Public Use
  Company Number: US-BAYER-2013-084223

PATIENT
  Age: 38 Year
  Sex: Female
  Weight: 59.86 kg

DRUGS (5)
  1. MIRENA [Suspect]
     Indication: CONTRACEPTION
     Dosage: 20 MCG/24HR, CONT
     Route: 015
     Dates: start: 200610
  2. CLONIDINE [Concomitant]
     Indication: HYPERTENSION
     Dosage: UNK
     Dates: start: 2006
  3. LOESTRIN [Concomitant]
  4. ORTHO TRI-CYCLEN [Concomitant]
  5. MICRONOR [Concomitant]

REACTIONS (13)
  - Embedded device [Not Recovered/Not Resolved]
  - Device breakage [None]
  - Complication of device removal [None]
  - Infertility female [None]
  - Nausea [Not Recovered/Not Resolved]
  - Injury [Not Recovered/Not Resolved]
  - Abdominal pain upper [Not Recovered/Not Resolved]
  - Abdominal pain lower [Not Recovered/Not Resolved]
  - Pain [Not Recovered/Not Resolved]
  - Device difficult to use [None]
  - Device misuse [None]
  - Emotional distress [None]
  - Mental disorder [None]
